FAERS Safety Report 5914964-8 (Version None)
Quarter: 2008Q4

REPORT INFORMATION
  Report Type: 
  Country: None (occurrence: None)
  Receive Date: 20081010
  Receipt Date: 20081002
  Transmission Date: 20090506
  Serious: Yes (Other)
  Sender: FDA-Public Use
  Company Number: GB-WATSON-2008-05891

PATIENT
  Sex: Male

DRUGS (2)
  1. TRELSTAR LA MIXJECT (WATSON LABORATORIES) [Suspect]
     Indication: PROSTATE CANCER
     Dosage: UNK
     Route: 065
  2. CASODEX [Suspect]
     Indication: PROSTATE CANCER
     Dosage: UNK
     Route: 065

REACTIONS (2)
  - AORTIC STENOSIS [None]
  - PROSTATIC SPECIFIC ANTIGEN INCREASED [None]
